FAERS Safety Report 9696156 (Version 4)
Quarter: 2013Q4

REPORT INFORMATION
  Report Type: Spontaneous
  Country: JP (occurrence: JP)
  Receive Date: 20131119
  Receipt Date: 20131220
  Transmission Date: 20140711
  Serious: Yes (Death, Hospitalization, Other)
  Sender: FDA-Public Use
  Company Number: JP-B.I. PHARMACEUTICALS,INC./RIDGEFIELD-2013-BI-37793NB

PATIENT
  Age: 72 Year
  Sex: Male

DRUGS (4)
  1. TRAZENTA [Suspect]
     Indication: DIABETES MELLITUS
     Dosage: 5 MG
     Route: 065
     Dates: start: 20130702, end: 20131105
  2. THYRADIN S/LEVOTHYROXINE SODIUM HYDRATE [Concomitant]
     Indication: HYPOPITUITARISM
     Dosage: 75 MG
     Route: 065
     Dates: start: 201209
  3. CORTRIL/HYDROCORTISONE [Concomitant]
     Indication: HYPOPITUITARISM
     Dosage: 10 MG
     Route: 065
     Dates: start: 201206
  4. EPADEL S / ETHYL ICOSAPENTATE [Concomitant]
     Indication: CHILLBLAINS
     Dosage: 1800 MG
     Route: 065
     Dates: start: 20130416

REACTIONS (6)
  - Pneumonia staphylococcal [Fatal]
  - Liver disorder [Fatal]
  - Pleural effusion [Fatal]
  - Ascites [Fatal]
  - Sepsis [Fatal]
  - Circulatory collapse [Unknown]
